FAERS Safety Report 11376203 (Version 1)
Quarter: 2015Q3

REPORT INFORMATION
  Report Type: Spontaneous
  Country: US (occurrence: US)
  Receive Date: 20150813
  Receipt Date: 20150813
  Transmission Date: 20151125
  Serious: Yes (Hospitalization)
  Sender: FDA-Public Use
  Company Number: US-ASTRAZENECA-2009BM05591

PATIENT
  Age: 801 Month
  Sex: Male
  Weight: 98.9 kg

DRUGS (11)
  1. BYETTA [Suspect]
     Active Substance: EXENATIDE
     Indication: TYPE 2 DIABETES MELLITUS
     Route: 058
     Dates: start: 200905
  2. ZYRTEC [Concomitant]
     Active Substance: CETIRIZINE HYDROCHLORIDE
     Dosage: UNK
     Route: 048
  3. BYETTA [Suspect]
     Active Substance: EXENATIDE
     Indication: TYPE 2 DIABETES MELLITUS
     Route: 058
     Dates: start: 200903, end: 200904
  4. CALCIUM [Concomitant]
     Active Substance: CALCIUM
     Dosage: TWO TIMES A DAY
     Route: 048
  5. BYDUREON [Suspect]
     Active Substance: EXENATIDE
     Indication: TYPE 2 DIABETES MELLITUS
     Route: 058
     Dates: start: 201502
  6. METFORMIN [Concomitant]
     Active Substance: METFORMIN HYDROCHLORIDE
     Indication: TYPE 2 DIABETES MELLITUS
     Route: 048
  7. FLONASE [Concomitant]
     Active Substance: FLUTICASONE PROPIONATE
     Dosage: UNK
  8. ASPIRIN. [Concomitant]
     Active Substance: ASPIRIN
     Route: 048
  9. BYETTA [Suspect]
     Active Substance: EXENATIDE
     Indication: TYPE 2 DIABETES MELLITUS
     Route: 058
     Dates: start: 200904, end: 200905
  10. BYETTA [Suspect]
     Active Substance: EXENATIDE
     Indication: TYPE 2 DIABETES MELLITUS
     Route: 058
  11. FISH OIL [Concomitant]
     Active Substance: FISH OIL
     Dosage: TWO TIMES A DAY

REACTIONS (15)
  - Weight decreased [Unknown]
  - Feeling abnormal [Unknown]
  - Flushing [Recovering/Resolving]
  - Fatigue [Not Recovered/Not Resolved]
  - Paranasal sinus discomfort [Unknown]
  - Nausea [Recovering/Resolving]
  - Myocardial infarction [Unknown]
  - Decreased appetite [Not Recovered/Not Resolved]
  - Somnolence [Unknown]
  - Diarrhoea [Unknown]
  - Injection site mass [Unknown]
  - Constipation [Unknown]
  - Irritability [Not Recovered/Not Resolved]
  - Blood glucose increased [Unknown]
  - Body temperature increased [Recovering/Resolving]

NARRATIVE: CASE EVENT DATE: 2009
